FAERS Safety Report 19581708 (Version 1)
Quarter: 2021Q3

REPORT INFORMATION
  Report Type: Report from Study
  Country: MA (occurrence: MA)
  Receive Date: 20210720
  Receipt Date: 20210720
  Transmission Date: 20211014
  Serious: Yes (Death)
  Sender: FDA-Public Use
  Company Number: NVSC2021MA162908

PATIENT
  Age: 58 Year
  Sex: Male

DRUGS (1)
  1. AFINITOR [Suspect]
     Active Substance: EVEROLIMUS
     Indication: LUNG NEOPLASM MALIGNANT
     Dosage: 5 MG, BID
     Route: 048
     Dates: start: 20200206

REACTIONS (2)
  - Sepsis [Fatal]
  - Product use in unapproved indication [Unknown]

NARRATIVE: CASE EVENT DATE: 20200206
